FAERS Safety Report 19976068 (Version 2)
Quarter: 2022Q1

REPORT INFORMATION
  Report Type: Spontaneous
  Country: US (occurrence: US)
  Receive Date: 20211020
  Receipt Date: 20220113
  Transmission Date: 20220423
  Serious: No
  Sender: FDA-Public Use
  Company Number: US-PFIZER INC-202101236386

PATIENT
  Age: 67 Year
  Sex: Female

DRUGS (2)
  1. XELJANZ XR [Suspect]
     Active Substance: TOFACITINIB CITRATE
     Indication: Rheumatoid arthritis
     Dosage: 11 MG, 1X/DAY
     Route: 048
     Dates: start: 2020
  2. METHOTREXATE [Concomitant]
     Active Substance: METHOTREXATE
     Dosage: UNK

REACTIONS (7)
  - Product dose omission issue [Unknown]
  - Pain [Unknown]
  - Memory impairment [Unknown]
  - Arthritis [Recovered/Resolved]
  - Musculoskeletal discomfort [Recovered/Resolved]
  - Blood pressure increased [Recovered/Resolved]
  - Arthralgia [Unknown]
